FAERS Safety Report 8303844-9 (Version None)
Quarter: 2012Q2

REPORT INFORMATION
  Report Type: 
  Country: None (occurrence: None)
  Receive Date: 20120423
  Receipt Date: 20120416
  Transmission Date: 20120825
  Serious: Yes (Hospitalization)
  Sender: FDA-Public Use
  Company Number: PHHY2012IT007062

PATIENT
  Sex: Male

DRUGS (3)
  1. LYRICA [Suspect]
     Indication: TRIGEMINAL NEURALGIA
     Dosage: 75 MG, DAILY
     Route: 048
     Dates: start: 20120111, end: 20120113
  2. TEGRETOL [Suspect]
     Dosage: 1200 MG/DAY
     Route: 048
     Dates: start: 20120111, end: 20120114
  3. TEGRETOL [Suspect]
     Indication: TRIGEMINAL NEURALGIA
     Dosage: 400 MG/DAY
     Route: 048
     Dates: end: 20120110

REACTIONS (5)
  - DRUG LEVEL INCREASED [None]
  - NYSTAGMUS [None]
  - DYSARTHRIA [None]
  - GAMMA-GLUTAMYLTRANSFERASE INCREASED [None]
  - ATAXIA [None]
